FAERS Safety Report 8029278-2 (Version None)
Quarter: 2012Q1

REPORT INFORMATION
  Report Type: 
  Country: None (occurrence: None)
  Receive Date: 20120106
  Receipt Date: 20111227
  Transmission Date: 20120608
  Serious: Yes (Death)
  Sender: FDA-Public Use
  Company Number: DE-TEVA-315246GER

PATIENT
  Age: 48 Year
  Sex: Male

DRUGS (2)
  1. DIAZEPAM [Suspect]
     Indication: DEPRESSION
     Dates: end: 20111001
  2. CITALOPRAM HYDROBROMIDE [Suspect]
     Indication: DEPRESSION
     Dates: end: 20111001

REACTIONS (2)
  - CARDIAC ARREST [None]
  - TOXICITY TO VARIOUS AGENTS [None]
